FAERS Safety Report 7715194-X (Version None)
Quarter: 2011Q3

REPORT INFORMATION
  Report Type: 
  Country: None (occurrence: None)
  Receive Date: 20110810
  Receipt Date: 20110520
  Transmission Date: 20111222
  Serious: No
  Sender: FDA-Public Use
  Company Number: 1000021059

PATIENT
  Sex: Female

DRUGS (3)
  1. VALIUM [Concomitant]
  2. SAVELLA [Suspect]
     Indication: FIBROMYALGIA
     Dosage: 25 MG (12.5 MG, 2 IN 1 D), ORAL, 25 MG (12.5M 2 IN 1 D), ORAL
     Route: 048
     Dates: start: 20110501, end: 20110516
  3. SAVELLA [Suspect]
     Indication: FIBROMYALGIA
     Dosage: 25 MG (12.5 MG, 2 IN 1 D), ORAL, 25 MG (12.5M 2 IN 1 D), ORAL
     Route: 048
     Dates: start: 20110520

REACTIONS (6)
  - ABNORMAL BEHAVIOUR [None]
  - AGITATION [None]
  - CRYING [None]
  - NERVOUSNESS [None]
  - HUNGER [None]
  - PALPITATIONS [None]
